FAERS Safety Report 22794338 (Version 2)
Quarter: 2023Q4

REPORT INFORMATION
  Report Type: Spontaneous
  Country: US (occurrence: US)
  Receive Date: 20230807
  Receipt Date: 20231017
  Transmission Date: 20240109
  Serious: No
  Sender: FDA-Public Use
  Company Number: US-BRISTOL-MYERS SQUIBB COMPANY-2023-110475

PATIENT
  Age: 66 Year
  Sex: Female

DRUGS (2)
  1. ZEPOSIA [Suspect]
     Active Substance: OZANIMOD HYDROCHLORIDE
     Indication: Product used for unknown indication
     Route: 048
  2. GABAPENTIN [Suspect]
     Active Substance: GABAPENTIN
     Indication: Product used for unknown indication

REACTIONS (7)
  - Fatigue [Unknown]
  - Abnormal dreams [Unknown]
  - Heart rate decreased [Unknown]
  - Myalgia [Unknown]
  - Headache [Unknown]
  - Muscle fatigue [Unknown]
  - Sinusitis [Unknown]
